FAERS Safety Report 7104237-2 (Version None)
Quarter: 2010Q4

REPORT INFORMATION
  Report Type: 
  Country: None (occurrence: None)
  Receive Date: 20101115
  Receipt Date: 20100611
  Transmission Date: 20110411
  Serious: No
  Sender: FDA-Public Use
  Company Number: US-ALLERGAN-1007705US

PATIENT
  Sex: Female

DRUGS (2)
  1. BOTOX COSMETIC [Suspect]
     Indication: SKIN WRINKLING
     Dosage: 22 UNITS, SINGLE
     Route: 030
     Dates: start: 20100507, end: 20100507
  2. BOTOX COSMETIC [Suspect]
     Dosage: UNK, SINGLE

REACTIONS (3)
  - EYELID PTOSIS [None]
  - FACIAL PARESIS [None]
  - VISION BLURRED [None]
